FAERS Safety Report 7404131-3 (Version None)
Quarter: 2011Q1

REPORT INFORMATION
  Report Type: 
  Country: None (occurrence: None)
  Receive Date: 20110331
  Receipt Date: 20110322
  Transmission Date: 20110831
  Serious: Yes (Other)
  Sender: FDA-Public Use
  Company Number: 2011MA002995

PATIENT
  Age: 59 Year
  Sex: Female

DRUGS (4)
  1. GABAPENTIN [Suspect]
     Indication: PRODUCT USED FOR UNKNOWN INDICATION
     Dosage: 600 MG;QD
     Dates: start: 20070101, end: 20100101
  2. TOPAMAX [Suspect]
     Indication: EPILEPSY
     Dosage: 70 MG;QD
     Dates: start: 20091001
  3. PHENYTOIN [Concomitant]
  4. TOPAMAX [Concomitant]

REACTIONS (10)
  - EYE HAEMORRHAGE [None]
  - VISION BLURRED [None]
  - DRUG INEFFECTIVE [None]
  - EYE PAIN [None]
  - FACIAL PAIN [None]
  - HEADACHE [None]
  - PARAESTHESIA [None]
  - FOREIGN BODY SENSATION IN EYES [None]
  - HYPOAESTHESIA [None]
  - PAIN IN EXTREMITY [None]
